FAERS Safety Report 8515332-5 (Version None)
Quarter: 2012Q3

REPORT INFORMATION
  Report Type: 
  Country: None (occurrence: None)
  Receive Date: 20120717
  Receipt Date: 20120710
  Transmission Date: 20120928
  Serious: Yes (Hospitalization)
  Sender: FDA-Public Use
  Company Number: DE-PFIZER INC-2011242602

PATIENT
  Age: 52 Year
  Sex: Female
  Weight: 91 kg

DRUGS (19)
  1. LEVOTHYROXINE SODIUM [Concomitant]
     Dosage: UNK
     Dates: start: 19950101
  2. ALDACTONE [Concomitant]
     Dosage: UNK
     Dates: start: 20110301
  3. SILDENAFIL CITRATE [Suspect]
     Indication: PULMONARY HYPERTENSION
     Dosage: 60 MG, UNK
     Route: 048
     Dates: start: 20110218
  4. MARCUMAR [Concomitant]
     Dosage: UNK
     Dates: start: 20110201
  5. TORSEMIDE [Concomitant]
     Dosage: UNK
     Dates: start: 20110201
  6. FERROUS SULFATE TAB [Concomitant]
     Dosage: UNK
     Dates: start: 20110815
  7. MEGACILLIN [Concomitant]
     Dosage: UNK
     Dates: start: 20110913
  8. EZETIMIBE [Concomitant]
     Dosage: UNK
     Dates: start: 20050101
  9. RIOCIGUAT [Suspect]
     Indication: PULMONARY ARTERIAL HYPERTENSION
     Dosage: UNK
     Route: 048
     Dates: start: 20110526, end: 20110830
  10. RIOCIGUAT [Suspect]
     Dosage: UNK
     Route: 048
     Dates: start: 20110831
  11. PARACODIN BITARTRATE TAB [Concomitant]
     Dosage: UNK
     Dates: start: 20100801
  12. HYDROCHLOROTHIAZIDE [Concomitant]
     Dosage: UNK
     Dates: start: 20110614
  13. POTASSIUM CHLORIDE [Concomitant]
     Dosage: UNK
     Dates: start: 20110614, end: 20110618
  14. LASIX [Concomitant]
     Dosage: UNK
     Dates: start: 20110621, end: 20110621
  15. METOPROLOL [Concomitant]
     Dosage: UNK
     Dates: start: 20020101, end: 20110617
  16. CANDESARTAN CILEXETIL [Concomitant]
     Dosage: UNK
     Dates: start: 20050101, end: 20110530
  17. PANTOPRAZOLE [Concomitant]
     Dosage: UNK
     Dates: start: 20110618
  18. CONCOR [Concomitant]
     Dosage: UNK
     Dates: start: 20110617
  19. DIPROGENTA [Concomitant]
     Dosage: UNK
     Dates: start: 20110914

REACTIONS (1)
  - CONSTIPATION [None]
